FAERS Safety Report 23863262 (Version 1)
Quarter: 2024Q2

REPORT INFORMATION
  Report Type: Spontaneous
  Country: IE (occurrence: IE)
  Receive Date: 20240516
  Receipt Date: 20240516
  Transmission Date: 20240715
  Serious: Yes (Other)
  Sender: FDA-Public Use
  Company Number: IE-OREXIGEN-2017-004434

PATIENT
  Age: 54 Year
  Sex: Female

DRUGS (23)
  1. BUPROPION HYDROCHLORIDE\NALTREXONE HYDROCHLORIDE [Suspect]
     Active Substance: BUPROPION HYDROCHLORIDE\NALTREXONE HYDROCHLORIDE
     Indication: Weight control
     Dosage: ONE TABLET IN THE MORNING
     Route: 048
     Dates: start: 20171208
  2. NALOXONE HYDROCHLORIDE\OXYCODONE HYDROCHLORIDE [Concomitant]
     Active Substance: NALOXONE HYDROCHLORIDE\OXYCODONE HYDROCHLORIDE
     Indication: Product used for unknown indication
     Dosage: 12 HOUR INTERVAL
     Route: 048
  3. INDERAL [Concomitant]
     Active Substance: PROPRANOLOL HYDROCHLORIDE
     Indication: Product used for unknown indication
     Dosage: TAKE FOUR IN THE MORNING AND EIGHT AT NIGHT AS DIRECTED IN 2 HOUR INTERVAL
     Route: 048
  4. LIORESAL [Concomitant]
     Active Substance: BACLOFEN
     Indication: Product used for unknown indication
     Dosage: 10 MG, 8 HOUR INTERVAL
     Route: 048
  5. MOVICOL [Concomitant]
     Active Substance: POLYETHYLENE GLYCOL 3350\POTASSIUM CHLORIDE\SODIUM BICARBONATE\SODIUM CHLORIDE
     Indication: Product used for unknown indication
     Dosage: POWDER FOR ORAL SOLUTION, 12 HOUR INTERVAL
     Route: 048
  6. BETNOVATE [Concomitant]
     Active Substance: BETAMETHASONE
     Indication: Product used for unknown indication
     Dosage: APPLY TO THE AFFECTED AREA AS REQUIRED
     Route: 065
  7. VICTOZA [Concomitant]
     Active Substance: LIRAGLUTIDE
     Indication: Product used for unknown indication
     Dosage: USE AS DIRECTED, SOLUTION FOR INJECTION
     Route: 065
  8. XYZAL [Concomitant]
     Active Substance: LEVOCETIRIZINE DIHYDROCHLORIDE
     Indication: Product used for unknown indication
     Dosage: TAKE 2 DAILY IN 12 HOUR INTERVAL
     Route: 048
  9. FROVEX [Concomitant]
     Indication: Product used for unknown indication
     Dosage: 2.5 MG, TO BE TAKEN AS DIRECTED
     Route: 048
  10. ELOCON [Concomitant]
     Active Substance: MOMETASONE FUROATE
     Indication: Product used for unknown indication
     Dosage: 0.1 MG, AS NECESSARY, APPLY TO THE AFFECTED AREAS AS DIRECTED
     Route: 058
  11. LIDOCAINE [Concomitant]
     Active Substance: LIDOCAINE
     Indication: Product used for unknown indication
     Dosage: MEDICATED PLASTER, THREE PATCHES PER DAY AS DIRECTED IN 8 HOUR INTERVAL
     Route: 003
  12. CITALOPRAM [Concomitant]
     Active Substance: CITALOPRAM\CITALOPRAM HYDROBROMIDE
     Indication: Product used for unknown indication
     Dosage: TAKE ONE AT NIGHT
     Route: 048
  13. CALCIUM\CHOLECALCIFEROL [Concomitant]
     Active Substance: CALCIUM\CHOLECALCIFEROL
     Indication: Product used for unknown indication
     Dosage: 400 IU/ 1250 MG, 12 HOUR INTERVAL
     Route: 048
  14. NEOCLARITYN [Concomitant]
     Active Substance: DESLORATADINE
     Indication: Product used for unknown indication
     Dosage: 5 MG, IN 12 HOUR INTERVAL, 2 TABLETS DAILY
     Route: 048
  15. DESOGESTREL [Concomitant]
     Active Substance: DESOGESTREL
     Indication: Product used for unknown indication
     Dosage: 75 ?G, 24 HOUR INTERVAL
     Route: 065
  16. LEVOTHYROXINE [Concomitant]
     Active Substance: LEVOTHYROXINE\LEVOTHYROXINE SODIUM
     Indication: Product used for unknown indication
     Dosage: 50 MG, IN 24 HOUR INTERVAL
     Route: 048
  17. LOSEC [Concomitant]
     Active Substance: OMEPRAZOLE
     Indication: Product used for unknown indication
     Dosage: 20 MG, IN 24 HOUR INTERVAL
     Route: 048
  18. TOPAMAX [Concomitant]
     Active Substance: TOPIRAMATE
     Indication: Product used for unknown indication
     Dosage: 25 MG, IN 12 HOUR INTERVAL
     Route: 048
  19. NASACORT [Concomitant]
     Active Substance: TRIAMCINOLONE ACETONIDE
     Indication: Product used for unknown indication
     Dosage: NASAL SPRAY, SUSPENSION, AS NECESSARY, USE AS DIRECTED
     Route: 055
  20. OLMESARTAN MEDOXOMIL [Concomitant]
     Active Substance: OLMESARTAN MEDOXOMIL
     Indication: Product used for unknown indication
     Dosage: 10 MG, IN 24 HOUR INTERVAL
     Route: 048
  21. OXYCODONE HYDROCHLORIDE [Concomitant]
     Active Substance: OXYCODONE HYDROCHLORIDE
     Indication: Product used for unknown indication
     Dosage: 10 MG, 6 HOUR INTERVAL
     Route: 048
  22. QUININE SULFATE [Concomitant]
     Active Substance: QUININE SULFATE
     Indication: Product used for unknown indication
     Dosage: 24 HOUR INTERVAL
     Route: 048
  23. LIOTHYRONINE HYDROCHLORIDE [Concomitant]
     Active Substance: LIOTHYRONINE HYDROCHLORIDE
     Indication: Product used for unknown indication
     Dosage: 20 ?G, TAKE HALF A TABLET AS DIRECTED
     Route: 048

REACTIONS (8)
  - Feeling cold [Recovering/Resolving]
  - Myoclonus [Recovering/Resolving]
  - Hyperventilation [Recovering/Resolving]
  - Muscle spasms [Recovering/Resolving]
  - Glassy eyes [Recovering/Resolving]
  - Hot flush [Recovering/Resolving]
  - Insomnia [Recovering/Resolving]
  - Hyperhidrosis [Recovering/Resolving]

NARRATIVE: CASE EVENT DATE: 20171208
